FAERS Safety Report 5339618-0 (Version None)
Quarter: 2007Q2

REPORT INFORMATION
  Report Type: 
  Country: None (occurrence: None)
  Receive Date: 20070525
  Receipt Date: 20070522
  Transmission Date: 20071010
  Serious: Yes (Hospitalization)
  Sender: FDA-Public Use
  Company Number: 2007SP007120

PATIENT
  Age: 55 Year
  Sex: Female
  Weight: 58.9676 kg

DRUGS (9)
  1. PEG-INTRON [Suspect]
     Indication: HEPATITIS C
     Dosage: 80 MCG; QW; SC
     Route: 058
     Dates: start: 20070409, end: 20070410
  2. RIBAVIRIN [Suspect]
     Indication: HEPATITIS C
     Dosage: PO
     Route: 048
     Dates: start: 20070409, end: 20070410
  3. ATENOLOL [Concomitant]
  4. PREVACID [Concomitant]
  5. CLONIDINE [Concomitant]
  6. REGLAN [Concomitant]
  7. XANAX [Concomitant]
  8. HYDROCODONE BITARTRATE [Concomitant]
  9. IBUPROFEN [Concomitant]

REACTIONS (3)
  - HAEMATEMESIS [None]
  - OESOPHAGEAL ULCER [None]
  - PANCREATITIS [None]
